FAERS Safety Report 6129946-3 (Version None)
Quarter: 2009Q1

REPORT INFORMATION
  Report Type: 
  Country: None (occurrence: None)
  Receive Date: 20090323
  Receipt Date: 20090323
  Transmission Date: 20090719
  Serious: Yes (Hospitalization)
  Sender: FDA-Public Use
  Company Number: None

PATIENT
  Age: 48 Year
  Sex: Female
  Weight: 59.8748 kg

DRUGS (1)
  1. AMBIEN [Suspect]
     Indication: INSOMNIA
     Dosage: 1 TABLET BEDTIME PO
     Route: 048
     Dates: start: 20090113, end: 20090128

REACTIONS (12)
  - ASTHENIA [None]
  - CHEST DISCOMFORT [None]
  - DRUG WITHDRAWAL SYNDROME [None]
  - FEAR [None]
  - FEELING DRUNK [None]
  - GAIT DISTURBANCE [None]
  - HEART RATE INCREASED [None]
  - INITIAL INSOMNIA [None]
  - NAUSEA [None]
  - PAIN [None]
  - POOR QUALITY SLEEP [None]
  - VOMITING [None]
